FAERS Safety Report 7613095-9 (Version None)
Quarter: 2011Q3

REPORT INFORMATION
  Report Type: 
  Country: None (occurrence: None)
  Receive Date: 20110708
  Receipt Date: 20110623
  Transmission Date: 20111222
  Serious: Yes (Other)
  Sender: FDA-Public Use
  Company Number: TCI2011A03686

PATIENT
  Age: 67 Year
  Sex: Male

DRUGS (3)
  1. AMARYL [Concomitant]
  2. PLETAL [Concomitant]
  3. ACTOS [Suspect]
     Indication: DIABETES MELLITUS
     Dosage: 15 MG (15 MG, 1 D) PER ORAL
     Route: 048

REACTIONS (1)
  - BLADDER CANCER [None]
